FAERS Safety Report 11172672 (Version 1)
Quarter: 2015Q2

REPORT INFORMATION
  Report Type: Report from Study
  Country: US (occurrence: US)
  Receive Date: 20150608
  Receipt Date: 20150608
  Transmission Date: 20150821
  Serious: Yes (Other)
  Sender: FDA-Public Use
  Company Number: US-ALEXION PHARMACEUTICALS INC.-A201502033

PATIENT

DRUGS (1)
  1. SOLIRIS [Suspect]
     Active Substance: ECULIZUMAB
     Indication: PAROXYSMAL NOCTURNAL HAEMOGLOBINURIA
     Dosage: UNK UNK, Q2W
     Route: 042

REACTIONS (3)
  - Jaundice [Not Recovered/Not Resolved]
  - Fatigue [Not Recovered/Not Resolved]
  - Extravascular haemolysis [Not Recovered/Not Resolved]

NARRATIVE: CASE EVENT DATE: 20150101
